FAERS Safety Report 14590796 (Version 1)
Quarter: 2018Q1

REPORT INFORMATION
  Report Type: Spontaneous
  Country: US (occurrence: US)
  Receive Date: 20180301
  Receipt Date: 20180301
  Transmission Date: 20180509
  Serious: Yes (Disabling, Other)
  Sender: FDA-Public Use
  Company Number: None

PATIENT
  Age: 54 Year
  Sex: Female
  Weight: 85.95 kg

DRUGS (11)
  1. LUPRON [Suspect]
     Active Substance: LEUPROLIDE ACETATE
     Indication: MENORRHAGIA
     Dosage: QUANTITY:1 INJECTION(S);OTHER FREQUENCY:1 X PER MONTH;OTHER ROUTE:INJECTION IN THE HIP- BUTTOCKS AREA?
  2. MELOXICAM. [Concomitant]
     Active Substance: MELOXICAM
  3. HYDROCODONE-ACETAMINOPHEN [Concomitant]
     Active Substance: ACETAMINOPHEN\HYDROCODONE
  4. PANTOPRAZOLE SODIUM. [Concomitant]
     Active Substance: PANTOPRAZOLE SODIUM
  5. GABAPENTIN. [Concomitant]
     Active Substance: GABAPENTIN
  6. NORTRIPTYLINE HCL [Concomitant]
     Active Substance: NORTRIPTYLINE HYDROCHLORIDE
  7. ASPIRIN 81 MG [Concomitant]
     Active Substance: ASPIRIN
  8. BUPROPION HCL ER (XL) [Concomitant]
  9. OLMESARTAN-AMLODIPINE-HCTZ [Concomitant]
  10. CLONAZEPAM. [Concomitant]
     Active Substance: CLONAZEPAM
  11. MECLIZINE HCL [Concomitant]
     Active Substance: MECLIZINE HYDROCHLORIDE

REACTIONS (7)
  - Quality of life decreased [None]
  - Arthralgia [None]
  - Asthenia [None]
  - Depression [None]
  - Fatigue [None]
  - Paraesthesia [None]
  - Osteoarthritis [None]

NARRATIVE: CASE EVENT DATE: 20120331
